FAERS Safety Report 15370182 (Version 1)
Quarter: 2018Q3

REPORT INFORMATION
  Report Type: Spontaneous
  Country: US (occurrence: US)
  Receive Date: 20180911
  Receipt Date: 20180911
  Transmission Date: 20181010
  Serious: No
  Sender: FDA-Public Use
  Company Number: US-MYLANLABS-2018M1064876

PATIENT
  Sex: Male
  Weight: 154 kg

DRUGS (3)
  1. NIFEDIPINE. [Suspect]
     Active Substance: NIFEDIPINE
     Indication: HYPERTENSION
     Dosage: UNK
     Route: 048
  2. VITAMIN D                          /00107901/ [Concomitant]
     Active Substance: ERGOCALCIFEROL
     Indication: PRODUCT USED FOR UNKNOWN INDICATION
     Dosage: UNK
  3. MORPHINE [Concomitant]
     Active Substance: MORPHINE
     Indication: BACK PAIN
     Dosage: UNK

REACTIONS (4)
  - Tinea cruris [Not Recovered/Not Resolved]
  - Abdominal discomfort [Recovered/Resolved]
  - Wrong technique in product usage process [Recovered/Resolved]
  - Fatigue [Recovered/Resolved]
